FAERS Safety Report 21329949 (Version 1)
Quarter: 2022Q3

REPORT INFORMATION
  Report Type: Spontaneous
  Country: US (occurrence: US)
  Receive Date: 20220913
  Receipt Date: 20220913
  Transmission Date: 20221027
  Serious: No
  Sender: FDA-Public Use
  Company Number: US-SA-SAC20220906000184

PATIENT
  Age: 14 Year
  Sex: Female
  Weight: 55.3 kg

DRUGS (1)
  1. DUPIXENT [Suspect]
     Active Substance: DUPILUMAB
     Indication: Dermatitis atopic
     Dosage: 200 MG, QOW
     Route: 058
     Dates: start: 20220720

REACTIONS (2)
  - Ocular icterus [Not Recovered/Not Resolved]
  - Dermatitis atopic [Not Recovered/Not Resolved]
